FAERS Safety Report 5533458-5 (Version None)
Quarter: 2007Q4

REPORT INFORMATION
  Report Type: 
  Country: None (occurrence: None)
  Receive Date: 20071204
  Receipt Date: 20071123
  Transmission Date: 20080405
  Serious: Yes (Death, Hospitalization)
  Sender: FDA-Public Use
  Company Number: FR-PFIZER INC-2006013778

PATIENT
  Sex: Female
  Weight: 68 kg

DRUGS (7)
  1. SU-011,248 [Suspect]
     Indication: GASTROINTESTINAL STROMAL TUMOUR
     Route: 048
     Dates: start: 20051202, end: 20060108
  2. LEVOTHYROX [Concomitant]
     Route: 048
  3. PREDNISONE TAB [Concomitant]
     Route: 048
  4. COVERSYL [Concomitant]
     Route: 048
  5. ROWASA [Concomitant]
     Route: 054
  6. MESALAMINE [Concomitant]
     Route: 048
  7. METRONIDAZOLE [Concomitant]
     Route: 048

REACTIONS (3)
  - GENERAL PHYSICAL HEALTH DETERIORATION [None]
  - SEPTIC SHOCK [None]
  - VOMITING [None]
